FAERS Safety Report 9263171 (Version 1)
Quarter: 2013Q2

REPORT INFORMATION
  Report Type: Spontaneous
  Country: DE (occurrence: None)
  Receive Date: 20130425
  Receipt Date: 20130425
  Transmission Date: 20140414
  Serious: Yes (Other)
  Sender: FDA-Public Use
  Company Number: 1304-538

PATIENT
  Age: 82 Year
  Sex: Female

DRUGS (2)
  1. EYLEA (AFLIBERCEPT) (INJECTION) (AFLIBERCEPT) [Suspect]
     Indication: AGE-RELATED MACULAR DEGENERATION
     Route: 031
     Dates: start: 20130415
  2. BETADINE [Suspect]

REACTIONS (5)
  - Eye pain [None]
  - Visual acuity reduced [None]
  - Ocular hyperaemia [None]
  - Wrong technique in drug usage process [None]
  - Vascular injury [None]
